FAERS Safety Report 19274225 (Version 1)
Quarter: 2021Q2

REPORT INFORMATION
  Report Type: Not Available
  Country: None (occurrence: None)
  Receive Date: 20210519
  Receipt Date: 20210519
  Transmission Date: 20210717
  Serious: No
  Sender: FDA-Public Use
  Company Number: US-AKORN-166643

PATIENT
  Age: 79 Year
  Sex: Female

DRUGS (1)
  1. ZIOPTAN [Suspect]
     Active Substance: TAFLUPROST

REACTIONS (3)
  - Rhinorrhoea [Recovered/Resolved]
  - Eye discharge [Not Recovered/Not Resolved]
  - Increased upper airway secretion [Recovered/Resolved]
